FAERS Safety Report 18311463 (Version 1)
Quarter: 2020Q3

REPORT INFORMATION
  Report Type: Spontaneous
  Country: US (occurrence: US)
  Receive Date: 20200924
  Receipt Date: 20200924
  Transmission Date: 20201103
  Serious: No
  Sender: FDA-Public Use
  Company Number: None

PATIENT
  Age: 73 Year
  Sex: Male

DRUGS (1)
  1. WARFARIN (WARFARIN NA (EXELAN) 5MG TAB) [Suspect]
     Active Substance: WARFARIN SODIUM
     Route: 048

REACTIONS (5)
  - Cholangitis [None]
  - Blood creatinine increased [None]
  - Blood urea increased [None]
  - Cholecystitis [None]
  - International normalised ratio abnormal [None]

NARRATIVE: CASE EVENT DATE: 20181217
